FAERS Safety Report 4946301-X (Version None)
Quarter: 2006Q1

REPORT INFORMATION
  Report Type: 
  Country: None (occurrence: None)
  Receive Date: 20060316
  Receipt Date: 20060316
  Transmission Date: 20060701
  Serious: Yes (Other)
  Sender: FDA-Public Use
  Company Number: None

PATIENT
  Sex: Male

DRUGS (2)
  1. KETEK [Suspect]
     Indication: COUGH
     Dosage: 800 MG DAILY PO
     Route: 048
     Dates: start: 20060204, end: 20060207
  2. KETEK [Suspect]
     Indication: SINUSITIS
     Dosage: 800 MG DAILY PO
     Route: 048
     Dates: start: 20060204, end: 20060207

REACTIONS (5)
  - ASPARTATE AMINOTRANSFERASE INCREASED [None]
  - CHILLS [None]
  - COUGH [None]
  - EOSINOPHIL PERCENTAGE INCREASED [None]
  - MALAISE [None]
